FAERS Safety Report 11445380 (Version 1)
Quarter: 2015Q3

REPORT INFORMATION
  Report Type: Spontaneous
  Country: GB (occurrence: GB)
  Receive Date: 20150902
  Receipt Date: 20150902
  Transmission Date: 20151125
  Serious: Yes (Death, Other)
  Sender: FDA-Public Use
  Company Number: GB-ROCHE-1627716

PATIENT
  Age: 82 Year
  Sex: Male
  Weight: 73.2 kg

DRUGS (10)
  1. METFORMIN [Concomitant]
     Active Substance: METFORMIN HYDROCHLORIDE
     Route: 065
  2. FUROSEMIDE. [Concomitant]
     Active Substance: FUROSEMIDE
     Route: 065
  3. ASPIRIN. [Concomitant]
     Active Substance: ASPIRIN
     Route: 065
  4. ALLOPURINOL. [Concomitant]
     Active Substance: ALLOPURINOL
     Route: 065
  5. CARVEDILOL. [Concomitant]
     Active Substance: CARVEDILOL
     Route: 065
  6. CANDESARTAN [Concomitant]
     Active Substance: CANDESARTAN
     Route: 065
  7. PARACETAMOL [Concomitant]
     Active Substance: ACETAMINOPHEN
     Route: 065
  8. SIMVASTATIN. [Concomitant]
     Active Substance: SIMVASTATIN
     Route: 065
  9. RITUXIMAB [Suspect]
     Active Substance: RITUXIMAB
     Indication: CHRONIC LYMPHOCYTIC LEUKAEMIA
     Dosage: THE PATIENT HAD HAD 2ML BEFORE LOSING CONSCIOUSNESS
     Route: 042
     Dates: start: 20150817, end: 20150817
  10. CO-AMOXICLAV [Concomitant]
     Active Substance: AMOXICILLIN\CLAVULANIC ACID
     Route: 065

REACTIONS (5)
  - Chest discomfort [Not Recovered/Not Resolved]
  - Acute myocardial infarction [Fatal]
  - Bundle branch block left [Not Recovered/Not Resolved]
  - Loss of consciousness [Recovered/Resolved]
  - Hypotension [Recovered/Resolved]

NARRATIVE: CASE EVENT DATE: 20150817
